FAERS Safety Report 22542105 (Version 1)
Quarter: 2023Q2

REPORT INFORMATION
  Report Type: Spontaneous
  Country: US (occurrence: US)
  Receive Date: 20230609
  Receipt Date: 20230609
  Transmission Date: 20230722
  Serious: No
  Sender: FDA-Public Use
  Company Number: US-FreseniusKabi-FK202307460

PATIENT
  Age: 52 Year
  Sex: Male

DRUGS (1)
  1. DILAUDID [Suspect]
     Active Substance: HYDROMORPHONE HYDROCHLORIDE
     Indication: Headache
     Dosage: UNK, UNKNOWN

REACTIONS (2)
  - Dyspepsia [Unknown]
  - Drug ineffective [Unknown]
